FAERS Safety Report 5949398-3 (Version None)
Quarter: 2008Q4

REPORT INFORMATION
  Report Type: 
  Country: None (occurrence: None)
  Receive Date: 20081112
  Receipt Date: 20081030
  Transmission Date: 20090506
  Serious: Yes (Other)
  Sender: FDA-Public Use
  Company Number: PHHY2008GB27333

PATIENT
  Age: 5 Year
  Sex: Male

DRUGS (1)
  1. TEGRETOL [Suspect]
     Dosage: 150 MG

REACTIONS (2)
  - EPILEPSY [None]
  - TREATMENT NONCOMPLIANCE [None]
